FAERS Safety Report 8798805 (Version 1)
Quarter: 2012Q4

REPORT INFORMATION
  Report Type: Spontaneous
  Country: US (occurrence: None)
  Receive Date: 20120917
  Receipt Date: 20120917
  Transmission Date: 20130627
  Serious: Yes (Hospitalization)
  Sender: FDA-Public Use
  Company Number: None

PATIENT
  Age: 54 Year
  Sex: Male
  Weight: 72.58 kg

DRUGS (1)
  1. DIFLUNISAL [Suspect]
     Indication: PAIN
     Dosage: 1 TABLET TWICE DAILY PO
     Route: 048
     Dates: start: 20120913, end: 20120914

REACTIONS (3)
  - Convulsion [None]
  - Headache [None]
  - Paraesthesia [None]
